FAERS Safety Report 7390403-8 (Version None)
Quarter: 2011Q2

REPORT INFORMATION
  Report Type: 
  Country: None (occurrence: None)
  Receive Date: 20110401
  Receipt Date: 20110329
  Transmission Date: 20111010
  Serious: Yes (Death)
  Sender: FDA-Public Use
  Company Number: US-ABBOTT-11P-163-0715018-00

PATIENT
  Sex: Female

DRUGS (7)
  1. COUMADIN [Concomitant]
     Indication: PRODUCT USED FOR UNKNOWN INDICATION
  2. METHOTREXATE [Concomitant]
     Indication: PRODUCT USED FOR UNKNOWN INDICATION
     Dates: end: 20110201
  3. LANOXIN [Concomitant]
     Indication: PRODUCT USED FOR UNKNOWN INDICATION
  4. PREMARIN [Concomitant]
     Indication: PRODUCT USED FOR UNKNOWN INDICATION
  5. CLINORIL [Concomitant]
     Indication: PRODUCT USED FOR UNKNOWN INDICATION
  6. AMLODIPINE [Concomitant]
     Indication: PRODUCT USED FOR UNKNOWN INDICATION
  7. HUMIRA [Suspect]
     Indication: RHEUMATOID ARTHRITIS
     Dates: start: 20060301, end: 20110201

REACTIONS (7)
  - PYREXIA [None]
  - RESPIRATORY ARREST [None]
  - HEART RATE DECREASED [None]
  - BLOOD GLUCOSE DECREASED [None]
  - FALL [None]
  - INFECTION [None]
  - SEPSIS [None]
